FAERS Safety Report 8496217-X (Version None)
Quarter: 2012Q3

REPORT INFORMATION
  Report Type: 
  Country: None (occurrence: None)
  Receive Date: 20120709
  Receipt Date: 20120629
  Transmission Date: 20120928
  Serious: Yes (Hospitalization)
  Sender: FDA-Public Use
  Company Number: US-ABBOTT-12P-163-0929608-00

PATIENT
  Sex: Male
  Weight: 78 kg

DRUGS (4)
  1. HUMIRA [Suspect]
     Dosage: WEEK 2
     Route: 058
  2. HUMIRA [Suspect]
     Indication: CROHN'S DISEASE
     Dosage: INDUCTION: BASELINE
     Route: 058
     Dates: start: 20070910, end: 20070910
  3. HUMIRA [Suspect]
     Route: 058
  4. HUMIRA [Suspect]
     Route: 058
     Dates: start: 20080324

REACTIONS (1)
  - IDIOPATHIC THROMBOCYTOPENIC PURPURA [None]
